FAERS Safety Report 19583758 (Version 2)
Quarter: 2021Q3

REPORT INFORMATION
  Report Type: Report from Study
  Country: DE (occurrence: DE)
  Receive Date: 20210720
  Receipt Date: 20210811
  Transmission Date: 20211014
  Serious: Yes (Life-Threatening, Hospitalization, Other)
  Sender: FDA-Public Use
  Company Number: DE-TAKEDA-DE201916157

PATIENT
  Sex: Female

DRUGS (19)
  1. TEDUGLUTIDE [Suspect]
     Active Substance: TEDUGLUTIDE
     Dosage: 0.03 MILLIGRAM/KILOGRAM (TED DAILY DOSE: 1.2 MG), 7 DOSES PER WEEK
     Route: 065
     Dates: start: 20171027, end: 201807
  2. TEDUGLUTIDE [Suspect]
     Active Substance: TEDUGLUTIDE
     Dosage: 0.03 MILLIGRAM/KILOGRAM (TED DAILY DOSE: 1.4 MG), 7 DOSES PER WEEK
     Route: 065
     Dates: start: 201807, end: 201902
  3. TEDUGLUTIDE [Suspect]
     Active Substance: TEDUGLUTIDE
     Dosage: 0.05 MILLIGRAM/KILOGRAM (TED DAILY DOSE: 1.3 MG), 7 DOSES PER WEEK
     Route: 065
     Dates: start: 20170314, end: 20170911
  4. TEDUGLUTIDE [Suspect]
     Active Substance: TEDUGLUTIDE
     Dosage: 0.05 MILLIGRAM/KILOGRAM (TED DAILY DOSE: 1.3 MG), 7 DOSES PER WEEK
     Route: 065
     Dates: start: 20170314, end: 20170911
  5. TEDUGLUTIDE [Suspect]
     Active Substance: TEDUGLUTIDE
     Dosage: 0.03 MILLIGRAM/KILOGRAM (TED DAILY DOSE: 1.4 MG), 7 DOSES PER WEEK
     Route: 065
     Dates: start: 201807, end: 201902
  6. TEDUGLUTIDE [Suspect]
     Active Substance: TEDUGLUTIDE
     Indication: SHORT-BOWEL SYNDROME
     Dosage: 0.05 MILLIGRAM/KILOGRAM (TED DAILY DOSE: 2.5 MILLIGRAM), 7 DOSES PER WEEK
     Route: 065
     Dates: start: 20160831, end: 20170224
  7. TEDUGLUTIDE [Suspect]
     Active Substance: TEDUGLUTIDE
     Dosage: 0.03 MILLIGRAM/KILOGRAM (TED DAILY DOSE: 1.4 MG), 7 DOSES PER WEEK
     Route: 065
     Dates: start: 201807, end: 201902
  8. OPIUM TINCTURE [Concomitant]
     Active Substance: MORPHINE
     Indication: DIARRHOEA
     Route: 065
  9. TEDUGLUTIDE [Suspect]
     Active Substance: TEDUGLUTIDE
     Dosage: 0.03 MILLIGRAM/KILOGRAM (TED DAILY DOSE: 1.2 MG), 7 DOSES PER WEEK
     Route: 065
     Dates: start: 20171027, end: 201807
  10. VITAMIN B12 [VITAMIN B12 NOS] [Concomitant]
     Active Substance: CYANOCOBALAMIN
     Indication: VITAMIN SUPPLEMENTATION
     Route: 065
  11. COLESTYRAMINE [Concomitant]
     Active Substance: CHOLESTYRAMINE
     Indication: DIARRHOEA
     Route: 065
  12. TEDUGLUTIDE [Suspect]
     Active Substance: TEDUGLUTIDE
     Dosage: 0.03 MILLIGRAM/KILOGRAM (TED DAILY DOSE: 1.2 MG), 7 DOSES PER WEEK
     Route: 065
     Dates: start: 20171027, end: 201807
  13. TEDUGLUTIDE [Suspect]
     Active Substance: TEDUGLUTIDE
     Indication: SHORT-BOWEL SYNDROME
     Dosage: 0.05 MILLIGRAM/KILOGRAM (TED DAILY DOSE: 2.5 MILLIGRAM), 7 DOSES PER WEEK
     Route: 065
     Dates: start: 20160831, end: 20170224
  14. TEDUGLUTIDE [Suspect]
     Active Substance: TEDUGLUTIDE
     Dosage: 0.03 MILLIGRAM/KILOGRAM (TED DAILY DOSE: 1.4 MG), 7 DOSES PER WEEK
     Route: 065
     Dates: start: 201807, end: 201902
  15. TEDUGLUTIDE [Suspect]
     Active Substance: TEDUGLUTIDE
     Indication: SHORT-BOWEL SYNDROME
     Dosage: 0.05 MILLIGRAM/KILOGRAM (TED DAILY DOSE: 2.5 MILLIGRAM), 7 DOSES PER WEEK
     Route: 065
     Dates: start: 20160831, end: 20170224
  16. TEDUGLUTIDE [Suspect]
     Active Substance: TEDUGLUTIDE
     Dosage: 0.05 MILLIGRAM/KILOGRAM (TED DAILY DOSE: 1.3 MG), 7 DOSES PER WEEK
     Route: 065
     Dates: start: 20170314, end: 20170911
  17. TEDUGLUTIDE [Suspect]
     Active Substance: TEDUGLUTIDE
     Dosage: 0.03 MILLIGRAM/KILOGRAM (TED DAILY DOSE: 1.2 MG), 7 DOSES PER WEEK
     Route: 065
     Dates: start: 20171027, end: 201807
  18. TEDUGLUTIDE [Suspect]
     Active Substance: TEDUGLUTIDE
     Indication: SHORT-BOWEL SYNDROME
     Dosage: 0.05 MILLIGRAM/KILOGRAM (TED DAILY DOSE: 2.5 MILLIGRAM), 7 DOSES PER WEEK
     Route: 065
     Dates: start: 20160831, end: 20170224
  19. TEDUGLUTIDE [Suspect]
     Active Substance: TEDUGLUTIDE
     Dosage: 0.05 MILLIGRAM/KILOGRAM (TED DAILY DOSE: 1.3 MG), 7 DOSES PER WEEK
     Route: 065
     Dates: start: 20170314, end: 20170911

REACTIONS (5)
  - Systemic inflammatory response syndrome [Recovered/Resolved]
  - Vena cava thrombosis [Recovered/Resolved]
  - Jugular vein haemorrhage [Recovered/Resolved]
  - Pulmonary haemorrhage [Recovered/Resolved]
  - Vascular device infection [Recovered/Resolved]

NARRATIVE: CASE EVENT DATE: 201902
